FAERS Safety Report 21648844 (Version 1)
Quarter: 2022Q4

REPORT INFORMATION
  Report Type: Spontaneous
  Country: US (occurrence: None)
  Receive Date: 20221123
  Receipt Date: 20221123
  Transmission Date: 20230113
  Serious: Yes (Death)
  Sender: FDA-Public Use
  Company Number: None

PATIENT
  Age: 59 Year
  Sex: Female
  Weight: 135.9 kg

DRUGS (4)
  1. DEXAMETHASONE SODIUM PHOSPHATE [Suspect]
     Active Substance: DEXAMETHASONE SODIUM PHOSPHATE
     Indication: Lung neoplasm malignant
     Dosage: OTHER FREQUENCY : Q21D;?
     Route: 042
  2. DEXAMETHASONE SODIUM PHOSPHATE [Suspect]
     Active Substance: DEXAMETHASONE SODIUM PHOSPHATE
     Indication: Bronchial carcinoma
  3. CINVANTI [Suspect]
     Active Substance: APREPITANT
     Indication: Lung neoplasm malignant
     Dosage: FREQUENCY: Q21D
     Route: 042
  4. CINVANTI [Suspect]
     Active Substance: APREPITANT
     Indication: Bronchial carcinoma

REACTIONS (1)
  - Death [None]
